FAERS Safety Report 6756320-9 (Version None)
Quarter: 2010Q2

REPORT INFORMATION
  Report Type: 
  Country: None (occurrence: None)
  Receive Date: 20100604
  Receipt Date: 20100525
  Transmission Date: 20101027
  Serious: Yes (Other)
  Sender: FDA-Public Use
  Company Number: US-ROCHE-706902

PATIENT
  Sex: Female
  Weight: 65 kg

DRUGS (8)
  1. NAPROSYN [Suspect]
     Dosage: HARD CAPSULE
     Route: 065
  2. LYRICA [Suspect]
     Indication: FIBROMYALGIA
     Route: 048
     Dates: start: 20090101
  3. NEURONTIN [Suspect]
     Route: 065
  4. CYMBALTA [Suspect]
     Indication: FIBROMYALGIA
     Route: 048
     Dates: start: 20090101
  5. ZOLOFT [Concomitant]
     Indication: DEPRESSION
  6. DIOVAN [Concomitant]
     Indication: HYPERTENSION
  7. PREMARIN [Concomitant]
     Indication: HYSTERECTOMY
  8. AMBIEN [Concomitant]
     Dosage: DAILY
     Route: 048
     Dates: start: 20080101

REACTIONS (4)
  - ANXIETY [None]
  - DRUG INEFFECTIVE [None]
  - RHEUMATOID FACTOR INCREASED [None]
  - SUICIDAL IDEATION [None]
